FAERS Safety Report 8159053-X (Version None)
Quarter: 2012Q1

REPORT INFORMATION
  Report Type: 
  Country: None (occurrence: None)
  Receive Date: 20120223
  Receipt Date: 20120215
  Transmission Date: 20120608
  Serious: Yes (Other)
  Sender: FDA-Public Use
  Company Number: JP-GENZYME-THYM-1002804

PATIENT
  Sex: Female
  Weight: 47 kg

DRUGS (21)
  1. THYMOGLOBULIN [Suspect]
     Dosage: 25 MG, ONCE
     Route: 042
     Dates: start: 20110722, end: 20110722
  2. THYMOGLOBULIN [Suspect]
     Dosage: 25 MG, ONCE
     Route: 042
     Dates: start: 20110803, end: 20110803
  3. THYMOGLOBULIN [Suspect]
     Indication: BONE MARROW CONDITIONING REGIMEN
     Dosage: UNK
     Route: 065
     Dates: start: 20101218, end: 20101220
  4. THYMOGLOBULIN [Suspect]
     Dosage: 50 MG, ONCE
     Route: 042
     Dates: start: 20110325, end: 20110325
  5. THYMOGLOBULIN [Suspect]
     Dosage: 25 MG, ONCE
     Route: 042
     Dates: start: 20110413, end: 20110413
  6. THYMOGLOBULIN [Suspect]
     Dosage: 25 MG, ONCE
     Route: 042
     Dates: start: 20110615, end: 20110615
  7. THYMOGLOBULIN [Suspect]
     Indication: ACUTE GRAFT VERSUS HOST DISEASE
     Dosage: 50 MG, ONCE
     Route: 042
     Dates: start: 20110225, end: 20110225
  8. THYMOGLOBULIN [Suspect]
     Dosage: 25 MG, ONCE
     Route: 042
     Dates: start: 20110713, end: 20110713
  9. THYMOGLOBULIN [Suspect]
     Dosage: 50 MG, ONCE
     Route: 042
     Dates: start: 20110602, end: 20110602
  10. THYMOGLOBULIN [Suspect]
     Dosage: 25 MG, ONCE
     Route: 042
     Dates: start: 20110708, end: 20110708
  11. THYMOGLOBULIN [Suspect]
     Dosage: 25 MG, ONCE
     Route: 042
     Dates: start: 20110623, end: 20110623
  12. FLUDARA [Concomitant]
     Indication: PRODUCT USED FOR UNKNOWN INDICATION
     Dosage: UNK
     Route: 065
     Dates: end: 20101217
  13. THYMOGLOBULIN [Suspect]
     Dosage: 50 MG, ONCE
     Route: 042
     Dates: start: 20110302, end: 20110302
  14. THYMOGLOBULIN [Suspect]
     Dosage: 25 MG, ONCE
     Route: 042
     Dates: start: 20110610, end: 20110610
  15. FOSCARNET SODIUM [Concomitant]
     Indication: INFECTION PROPHYLAXIS
     Dosage: UNK
     Dates: start: 20110225, end: 20110825
  16. TACROLIMUS [Concomitant]
     Indication: ACUTE MYELOID LEUKAEMIA
     Dosage: UNK
     Dates: start: 20110225
  17. CYCLOPHOSPHAMIDE [Concomitant]
     Indication: PRODUCT USED FOR UNKNOWN INDICATION
     Dosage: UNK
     Route: 065
     Dates: start: 20101212, end: 20101215
  18. THYMOGLOBULIN [Suspect]
     Dosage: 25 MG, ONCE
     Route: 042
     Dates: start: 20110701, end: 20110701
  19. PREDNISOLONE [Concomitant]
     Indication: ACUTE MYELOID LEUKAEMIA
     Dosage: UNK
     Dates: start: 20110225
  20. IMMUNE GLOBULIN NOS [Concomitant]
     Indication: INFECTION PROPHYLAXIS
     Dosage: UNK
     Dates: start: 20110316, end: 20110819
  21. GANCICLOVIR [Concomitant]
     Indication: INFECTION PROPHYLAXIS
     Dosage: UNK
     Dates: start: 20110320, end: 20110823

REACTIONS (2)
  - RETINITIS VIRAL [None]
  - ACUTE GRAFT VERSUS HOST DISEASE [None]
